FAERS Safety Report 4349959-1 (Version None)
Quarter: 2004Q2

REPORT INFORMATION
  Report Type: 
  Country: None (occurrence: None)
  Receive Date: 20040426
  Receipt Date: 20040414
  Transmission Date: 20050107
  Serious: Yes (Hospitalization)
  Sender: FDA-Public Use
  Company Number: US-SHR-04-020323

PATIENT
  Age: 44 Year
  Sex: Female
  Weight: 65.8 kg

DRUGS (10)
  1. BETASERON [Suspect]
     Indication: MULTIPLE SCLEROSIS
     Dosage: 8 MIU, EVERY 2D, SUBCUTANEOUS
     Route: 058
     Dates: start: 20040105
  2. PAXIL [Concomitant]
  3. SOMA [Concomitant]
  4. VALIUM [Concomitant]
  5. TYLOX (OXYCODONE HYDROCHLORIDE) [Concomitant]
  6. DEMEROL [Concomitant]
  7. VICODIN ES (HYDROCODONE BITARTRATE) [Concomitant]
  8. TYLENOL (CAPLET) [Concomitant]
  9. LEVAQUIN [Concomitant]
  10. MULTIPLE VITAMINS (RETINOL) [Concomitant]

REACTIONS (6)
  - ARTHRALGIA [None]
  - DIFFICULTY IN WALKING [None]
  - FUNGAL INFECTION [None]
  - HEADACHE [None]
  - MEDICATION ERROR [None]
  - PAIN [None]
